FAERS Safety Report 7938495-9 (Version None)
Quarter: 2011Q4

REPORT INFORMATION
  Report Type: 
  Country: None (occurrence: None)
  Receive Date: 20111123
  Receipt Date: 20090706
  Transmission Date: 20120403
  Serious: Yes (Other)
  Sender: FDA-Public Use
  Company Number: PHHY2009TW61081

PATIENT
  Sex: Male

DRUGS (2)
  1. GLEEVEC [Suspect]
     Indication: CHRONIC MYELOID LEUKAEMIA
     Dosage: 400 MG, UNK
  2. GLEEVEC [Suspect]
     Dosage: 600 MG, UNK
     Route: 048

REACTIONS (11)
  - ROAD TRAFFIC ACCIDENT [None]
  - INJURY [None]
  - NAUSEA [None]
  - ABDOMINAL DISCOMFORT [None]
  - ANAEMIA [None]
  - JOINT INJURY [None]
  - GASTROOESOPHAGEAL REFLUX DISEASE [None]
  - DRUG LEVEL BELOW THERAPEUTIC [None]
  - DEPRESSION [None]
  - VOMITING [None]
  - FEELING ABNORMAL [None]
